FAERS Safety Report 6557787-1 (Version None)
Quarter: 2010Q1

REPORT INFORMATION
  Report Type: 
  Country: None (occurrence: None)
  Receive Date: 20100129
  Receipt Date: 20100125
  Transmission Date: 20100710
  Serious: Yes (Hospitalization)
  Sender: FDA-Public Use
  Company Number: PHHO2006US15681

PATIENT
  Sex: Male

DRUGS (20)
  1. CERTICAN [Suspect]
     Indication: RENAL TRANSPLANT
     Dosage: 2 MG, BID
     Route: 048
     Dates: start: 20050118, end: 20060919
  2. CERTICAN [Suspect]
     Dosage: 2 MG, BID
     Route: 048
     Dates: start: 20061003
  3. PROGRAF [Concomitant]
     Indication: TRANSPLANT
     Dosage: 2 MG, BID
     Route: 048
     Dates: start: 20050119
  4. PREDNISONE [Concomitant]
     Indication: TRANSPLANT
     Dosage: 5 MG QD
     Route: 048
     Dates: start: 20050119
  5. ASPIRIN [Concomitant]
  6. ATENOLOL [Concomitant]
  7. CLONIDINE [Concomitant]
  8. COLACE [Concomitant]
  9. FISH OIL [Concomitant]
  10. FOSAMAX [Concomitant]
  11. HUMALOG [Concomitant]
  12. ILETIN [Concomitant]
  13. LIPITOR [Concomitant]
  14. NEXIUM [Concomitant]
  15. OSCAL [Concomitant]
  16. TESTOSTERONE [Concomitant]
  17. ZETIA [Concomitant]
  18. SIMVASTATIN [Concomitant]
  19. ENALAPRIL MALEATE [Concomitant]
  20. INSULIN [Concomitant]

REACTIONS (7)
  - CONCOMITANT DISEASE PROGRESSION [None]
  - ERYTHEMA [None]
  - LOCALISED INFECTION [None]
  - OSTEOMYELITIS [None]
  - PURULENT DISCHARGE [None]
  - SKIN ULCER [None]
  - SWELLING [None]
